FAERS Safety Report 9775873 (Version 2)
Quarter: 2013Q4

REPORT INFORMATION
  Report Type: Spontaneous
  Country: US (occurrence: US)
  Receive Date: 20131220
  Receipt Date: 20131230
  Transmission Date: 20140711
  Serious: Yes (Hospitalization)
  Sender: FDA-Public Use
  Company Number: US-BAYER-2013-154579

PATIENT
  Age: 45 Year
  Sex: Female
  Weight: 64.85 kg

DRUGS (2)
  1. ALKA-SELTZER ORIGINAL [Suspect]
     Indication: ABDOMINAL DISCOMFORT
     Dosage: 1 DF, ONCE
     Route: 048
     Dates: start: 20131211, end: 20131211
  2. ZYRTEC [Concomitant]

REACTIONS (7)
  - Drug hypersensitivity [Not Recovered/Not Resolved]
  - Urticaria [Not Recovered/Not Resolved]
  - Lip swelling [Not Recovered/Not Resolved]
  - Eyelid oedema [Not Recovered/Not Resolved]
  - Throat tightness [Not Recovered/Not Resolved]
  - Dyspnoea [Not Recovered/Not Resolved]
  - Pruritus [Not Recovered/Not Resolved]
